FAERS Safety Report 16875957 (Version 1)
Quarter: 2019Q4

REPORT INFORMATION
  Report Type: Spontaneous
  Country: US (occurrence: US)
  Receive Date: 20191002
  Receipt Date: 20191002
  Transmission Date: 20200122
  Serious: No
  Sender: FDA-Public Use
  Company Number: US-GW PHARMA-201907USGW2511

PATIENT

DRUGS (5)
  1. EPIDIOLEX [Suspect]
     Active Substance: CANNABIDIOL
     Dosage: 23.62 MG/KG, 1500 MILLIGRAM, BID
     Route: 048
     Dates: start: 2019
  2. ATIVAN [Concomitant]
     Active Substance: LORAZEPAM
     Indication: PRODUCT USED FOR UNKNOWN INDICATION
     Dosage: 2 MILLIGRAM, PRN
     Route: 065
  3. TRILEPTAL [Concomitant]
     Active Substance: OXCARBAZEPINE
     Indication: PRODUCT USED FOR UNKNOWN INDICATION
     Dosage: 600 MILLIGRAM, BID
     Route: 065
  4. EPIDIOLEX [Suspect]
     Active Substance: CANNABIDIOL
     Indication: SEIZURE
     Dosage: 5.67 MG/KG, 360 MILLIGRAM, BID (3 TO 4 DAYS)
     Route: 048
     Dates: start: 20190503, end: 201905
  5. EPIDIOLEX [Suspect]
     Active Substance: CANNABIDIOL
     Dosage: 11.34 MG/KG, 720 MILLIGRAM, BID
     Route: 048
     Dates: start: 201905, end: 2019

REACTIONS (3)
  - Nasopharyngitis [Unknown]
  - Sneezing [Unknown]
  - Diarrhoea [Unknown]

NARRATIVE: CASE EVENT DATE: 2019
